FAERS Safety Report 7788697-X (Version None)
Quarter: 2011Q3

REPORT INFORMATION
  Report Type: 
  Country: None (occurrence: None)
  Receive Date: 20110930
  Receipt Date: 20110712
  Transmission Date: 20111222
  Serious: Yes (Life-Threatening, Hospitalization)
  Sender: FDA-Public Use
  Company Number: US-VIIV HEALTHCARE LIMITED-A0936495A

PATIENT
  Age: 41 Year
  Sex: Male

DRUGS (4)
  1. BACTRIM [Suspect]
     Indication: ANTIFUNGAL PROPHYLAXIS
     Route: 065
     Dates: start: 20110101
  2. PREZISTA [Concomitant]
     Indication: HIV INFECTION
     Route: 065
     Dates: start: 20110101
  3. EPZICOM [Suspect]
     Indication: HIV INFECTION
     Route: 048
     Dates: start: 20110101
  4. NORVIR [Concomitant]
     Indication: HIV INFECTION
     Route: 065
     Dates: start: 20110101

REACTIONS (5)
  - NAUSEA [None]
  - VOMITING [None]
  - RASH [None]
  - PYREXIA [None]
  - HYPERSENSITIVITY [None]
